FAERS Safety Report 10686735 (Version 1)
Quarter: 2015Q1

REPORT INFORMATION
  Report Type: Spontaneous
  Country: GB (occurrence: GB)
  Receive Date: 20150101
  Receipt Date: 20150101
  Transmission Date: 20150720
  Serious: Yes (Other)
  Sender: FDA-Public Use
  Company Number: PHHY2014GB169442

PATIENT
  Age: 62 Year
  Sex: Female
  Weight: 55.33 kg

DRUGS (2)
  1. TOPIRAMATE. [Suspect]
     Active Substance: TOPIRAMATE
     Indication: MIGRAINE WITH AURA
     Dosage: UNK
     Route: 048
  2. ATENOLOL. [Concomitant]
     Active Substance: ATENOLOL
     Indication: PRODUCT USED FOR UNKNOWN INDICATION
     Route: 065

REACTIONS (4)
  - Neoplasm malignant [Not Recovered/Not Resolved]
  - Oesophageal obstruction [Not Recovered/Not Resolved]
  - Gastrooesophageal reflux disease [Recovered/Resolved with Sequelae]
  - Dysphagia [Not Recovered/Not Resolved]
